FAERS Safety Report 25974838 (Version 1)
Quarter: 2025Q4

REPORT INFORMATION
  Report Type: Spontaneous
  Country: US (occurrence: US)
  Receive Date: 20251029
  Receipt Date: 20251029
  Transmission Date: 20260118
  Serious: Yes (Other)
  Sender: FOUNDATION CONSUMER HEALTHCARE, LLC
  Company Number: US-FOUNDATIONCONSUMERHC-2025-US-048070

PATIENT
  Age: 22 Year
  Sex: Female
  Weight: 95.26 kg

DRUGS (1)
  1. PLAN B ONE-STEP [Suspect]
     Active Substance: LEVONORGESTREL
     Indication: Post coital contraception
     Dosage: 1.5 MG WITHIN 48 HOURS AFTER UNPROTECTED INTERCOURSE
     Route: 048
     Dates: start: 202507, end: 202507

REACTIONS (3)
  - Pregnancy after post coital contraception [Unknown]
  - Abortion spontaneous [Unknown]
  - Drug ineffective [Unknown]

NARRATIVE: CASE EVENT DATE: 20250701
